FAERS Safety Report 12488359 (Version 2)
Quarter: 2016Q4

REPORT INFORMATION
  Report Type: Report from Study
  Country: JP (occurrence: JP)
  Receive Date: 20160622
  Receipt Date: 20161013
  Transmission Date: 20170207
  Serious: Yes (Death, Hospitalization)
  Sender: FDA-Public Use
  Company Number: JP-SA-2016SA112853

PATIENT
  Sex: Female

DRUGS (5)
  1. PHOSBLOCK [Suspect]
     Active Substance: FERRIC HYDROXIDE
     Route: 048
  2. EPOETIN ALFA [Suspect]
     Active Substance: ERYTHROPOIETIN
     Route: 065
     Dates: start: 20150716
  3. PHOSBLOCK [Suspect]
     Active Substance: FERRIC HYDROXIDE
     Dosage: REGIMEN 1, 2, 3
     Route: 048
  4. EPOETIN ALFA [Suspect]
     Active Substance: ERYTHROPOIETIN
     Route: 065
     Dates: start: 20150410, end: 20150715
  5. PHOSBLOCK [Suspect]
     Active Substance: FERRIC HYDROXIDE
     Dosage: REGIMEN 1, 2, 3
     Route: 048

REACTIONS (3)
  - Death [Fatal]
  - Fracture [Recovering/Resolving]
  - Hospitalisation [Recovering/Resolving]

NARRATIVE: CASE EVENT DATE: 20150620
